FAERS Safety Report 10080373 (Version 1)
Quarter: 2014Q2

REPORT INFORMATION
  Report Type: Spontaneous
  Country: JP (occurrence: JP)
  Receive Date: 20140415
  Receipt Date: 20140415
  Transmission Date: 20141212
  Serious: Yes (Hospitalization)
  Sender: FDA-Public Use
  Company Number: JP-ROCHE-1379864

PATIENT
  Age: 51 Year
  Sex: Male

DRUGS (3)
  1. ROCEPHIN [Suspect]
     Indication: PNEUMONIA ASPIRATION
     Dosage: DOSAGE IS UNCERTAIN.
     Route: 042
  2. INSULIN [Concomitant]
     Indication: DIABETIC COMA
     Dosage: DOSAGE IS UNCERTAIN.
     Route: 058
  3. CLINDAMYCIN PHOSPHATE [Concomitant]
     Dosage: DOSAGE IS UNCERTAIN.
     Route: 065

REACTIONS (1)
  - Drug reaction with eosinophilia and systemic symptoms [Unknown]
